FAERS Safety Report 9570840 (Version 1)
Quarter: 2013Q3

REPORT INFORMATION
  Report Type: Spontaneous
  Country: US (occurrence: None)
  Receive Date: 20130927
  Receipt Date: 20130927
  Transmission Date: 20140515
  Serious: Yes (Death, Hospitalization)
  Sender: FDA-Public Use
  Company Number: IPC201309-000367

PATIENT
  Age: 57 Year
  Sex: Female

DRUGS (11)
  1. METFORMIN HYDROCHLORIDE [Suspect]
  2. MIRTAZAPINE ( MIRTAZAPINE) ( MIRTAZINE) [Concomitant]
  3. ATORVASTATIN ( ATORVASTATIN CALCIUM) (ATORVASTATIN CALCIUM) [Concomitant]
  4. LOSARTAN ( LOSARTAN) (LOSARTAN) [Concomitant]
  5. GLIPIZIDE (GLIPIZIDE) ( GLIPIZIDE) [Concomitant]
  6. PIOGLITAZONE/ GLIMEPIRIDE(PIOGLITAZONE, GLIMEPIRIDE) (PIOGLITAZONE, GLIMEPIRIDE) [Concomitant]
  7. TRAZADONE ( TRAZODONE HYDROCHLORIDE) (TRAZADONE HYDROCHLORIDE) [Concomitant]
  8. CLONAZEPAM ( CLONAZEPAM) ( CLONZAPEM) [Concomitant]
  9. UBIDECARENONE ( UBIDECARENONE) ( UBIDECARENONE) [Concomitant]
  10. ASPIRIN (ACETYLSALICYLIC ACID) ( ACETYLSALICYLIC ACID) [Concomitant]
  11. VITAMINS ( VITAMINS) ( VITAMINS) [Concomitant]

REACTIONS (8)
  - Completed suicide [None]
  - Toxicity to various agents [None]
  - Stomatitis [None]
  - Diarrhoea [None]
  - Vomiting [None]
  - Depressed level of consciousness [None]
  - Hypotension [None]
  - Intentional overdose [None]
